FAERS Safety Report 17076863 (Version 2)
Quarter: 2019Q4

REPORT INFORMATION
  Report Type: Report from Study
  Country: US (occurrence: US)
  Receive Date: 20191126
  Receipt Date: 20191203
  Transmission Date: 20200122
  Serious: No
  Sender: FDA-Public Use
  Company Number: US-SA-2019SA321735

PATIENT
  Age: 69 Year
  Sex: Female

DRUGS (1)
  1. ALIROCUMAB [Suspect]
     Active Substance: ALIROCUMAB
     Dosage: 75 MG, QOW
     Route: 058
     Dates: start: 20190808, end: 2019

REACTIONS (5)
  - Myalgia [Unknown]
  - Bone pain [Unknown]
  - Cognitive disorder [Unknown]
  - Feeling abnormal [Unknown]
  - Condition aggravated [Unknown]
